FAERS Safety Report 5034042-2 (Version None)
Quarter: 2006Q2

REPORT INFORMATION
  Report Type: 
  Country: None (occurrence: None)
  Receive Date: 20060626
  Receipt Date: 20060611
  Transmission Date: 20061013
  Serious: Yes (Hospitalization)
  Sender: FDA-Public Use
  Company Number: US-AMGEN-STX182716

PATIENT
  Sex: Male

DRUGS (2)
  1. ENBREL [Suspect]
     Indication: RHEUMATOID ARTHRITIS
     Route: 058
     Dates: start: 20050622
  2. METHOTREXATE [Concomitant]
     Dates: start: 20040101

REACTIONS (3)
  - FOOT OPERATION [None]
  - GASTRIC BYPASS [None]
  - INJECTION SITE IRRITATION [None]
